FAERS Safety Report 7570923-3 (Version None)
Quarter: 2011Q2

REPORT INFORMATION
  Report Type: 
  Country: None (occurrence: None)
  Receive Date: 20110620
  Receipt Date: 20110606
  Transmission Date: 20111010
  Serious: Yes (Other)
  Sender: FDA-Public Use
  Company Number: 2011AT000187

PATIENT
  Sex: Male

DRUGS (3)
  1. TESTOSTERONE [Suspect]
  2. ESTRONE [Concomitant]
  3. ESTRADIOL [Suspect]

REACTIONS (3)
  - GYNAECOMASTIA [None]
  - GROWTH ACCELERATED [None]
  - ACCIDENTAL EXPOSURE [None]
